FAERS Safety Report 5042284-5 (Version None)
Quarter: 2006Q2

REPORT INFORMATION
  Report Type: 
  Country: None (occurrence: None)
  Receive Date: 20060627
  Receipt Date: 20060602
  Transmission Date: 20061013
  Serious: Yes (Disabling)
  Sender: FDA-Public Use
  Company Number: DSA_22893_2003

PATIENT
  Age: 44 Year
  Sex: Female

DRUGS (1)
  1. VASOTEC [Suspect]
     Indication: BLOOD PRESSURE ABNORMAL
     Dosage: 10 MG QD PO
     Route: 048
     Dates: start: 19910101, end: 19950101

REACTIONS (15)
  - AMNESIA [None]
  - DEPRESSION [None]
  - DIZZINESS [None]
  - EYE SWELLING [None]
  - FLUSHING [None]
  - HEADACHE [None]
  - HYPOTENSION [None]
  - IMPAIRED WORK ABILITY [None]
  - LIBIDO INCREASED [None]
  - NIGHT SWEATS [None]
  - OEDEMA PERIPHERAL [None]
  - SELF ESTEEM DECREASED [None]
  - SOCIAL PROBLEM [None]
  - SWELLING FACE [None]
  - VISION BLURRED [None]
